FAERS Safety Report 14381845 (Version 1)
Quarter: 2018Q1

REPORT INFORMATION
  Report Type: Spontaneous
  Country: JP (occurrence: JP)
  Receive Date: 20180112
  Receipt Date: 20180112
  Transmission Date: 20180509
  Serious: Yes (Hospitalization, Other)
  Sender: FDA-Public Use
  Company Number: JP-PFIZER INC-2018012098

PATIENT
  Age: 35 Year
  Sex: Female

DRUGS (2)
  1. HYDROCORTISONE. [Suspect]
     Active Substance: HYDROCORTISONE
     Indication: HYPERADRENALISM
  2. HYDROCORTISONE. [Suspect]
     Active Substance: HYDROCORTISONE
     Indication: 21-HYDROXYLASE DEFICIENCY
     Dosage: 10 MG, DAILY
     Route: 048

REACTIONS (2)
  - Gestational diabetes [Unknown]
  - Amniotic cavity infection [Unknown]
